FAERS Safety Report 23654797 (Version 1)
Quarter: 2024Q1

REPORT INFORMATION
  Report Type: Spontaneous
  Country: US (occurrence: US)
  Receive Date: 20240320
  Receipt Date: 20240320
  Transmission Date: 20240410
  Serious: Yes (Other)
  Sender: FDA-Public Use
  Company Number: US-ELI_LILLY_AND_COMPANY-US202403006826

PATIENT
  Age: 62 Year
  Sex: Male

DRUGS (1)
  1. VERZENIO [Suspect]
     Active Substance: ABEMACICLIB
     Indication: Bone cancer
     Dosage: 150 MG, BID (21 DAYS ON AND 7 DAYS OFF)
     Route: 048

REACTIONS (2)
  - Sepsis [Unknown]
  - Off label use [Unknown]
